FAERS Safety Report 7562798-3 (Version None)
Quarter: 2011Q2

REPORT INFORMATION
  Report Type: 
  Country: None (occurrence: None)
  Receive Date: 20110525
  Receipt Date: 20110408
  Transmission Date: 20111010
  Serious: No
  Sender: FDA-Public Use
  Company Number: 327070

PATIENT
  Age: 66 Year
  Sex: Female

DRUGS (1)
  1. VICTOZA [Suspect]
     Indication: TYPE 2 DIABETES MELLITUS
     Dosage: 0.6 MG , 1.2 MG, 1.8 MG QD, SUBCUTANEOUS
     Route: 058
     Dates: start: 20110317

REACTIONS (2)
  - NAUSEA [None]
  - ASTHENIA [None]
